FAERS Safety Report 7687806-0 (Version None)
Quarter: 2011Q3

REPORT INFORMATION
  Report Type: 
  Country: None (occurrence: None)
  Receive Date: 20110817
  Receipt Date: 20110805
  Transmission Date: 20111222
  Serious: Yes (Hospitalization)
  Sender: FDA-Public Use
  Company Number: US-ELI_LILLY_AND_COMPANY-US201108002308

PATIENT
  Sex: Female

DRUGS (6)
  1. PREDNISONE [Concomitant]
  2. FORTEO [Suspect]
     Indication: OSTEOPOROSIS
     Dosage: 20 UG, QD
     Route: 065
  3. OMEPRAZOLE [Concomitant]
  4. AZATHIOPRIN [Concomitant]
  5. HYDROCODONE BITARTRATE AND ACETAMINOPHEN [Concomitant]
  6. CALCIUM CARBONATE [Concomitant]

REACTIONS (2)
  - PNEUMONIA [None]
  - BLOOD CREATININE INCREASED [None]
